FAERS Safety Report 16059712 (Version 5)
Quarter: 2019Q2

REPORT INFORMATION
  Report Type: Spontaneous
  Country: DE (occurrence: DE)
  Receive Date: 20190311
  Receipt Date: 20190514
  Transmission Date: 20190711
  Serious: Yes (Other)
  Sender: FDA-Public Use
  Company Number: DE-BAUSCH-BL-2019-004671

PATIENT
  Age: 75 Year
  Sex: Male
  Weight: 76 kg

DRUGS (9)
  1. FLOXAL [Suspect]
     Active Substance: OFLOXACIN
     Indication: POSTOPERATIVE CARE
     Dosage: 4X1 DROP DAILY IN AFFECTED EYE
     Route: 065
     Dates: start: 20190228, end: 201904
  2. SOFTACORT [Concomitant]
     Active Substance: HYDROCORTISONE SODIUM PHOSPHATE
     Indication: POST PROCEDURAL INFLAMMATION
     Dates: start: 2019
  3. FLOXAL [Suspect]
     Active Substance: OFLOXACIN
     Indication: PRODUCT USE IN UNAPPROVED INDICATION
  4. TIMOPTIC [Suspect]
     Active Substance: TIMOLOL MALEATE
     Indication: PRODUCT USE IN UNAPPROVED INDICATION
  5. OFLOXACIN-OPHTAL SINE 3 MG/ML AUGENTROPFEN [Suspect]
     Active Substance: OFLOXACIN
     Indication: POST PROCEDURAL INFLAMMATION
     Dosage: 4 X 1 DROPS/DAILY
     Route: 065
     Dates: start: 20190206, end: 20190313
  6. DEXA EDO [Suspect]
     Active Substance: DEXAMETHASONE SODIUM PHOSPHATE
     Indication: POSTOPERATIVE CARE
     Dosage: 6X2 DROP DAILY IN AFFECTED EYE AND USED FOR APPROXIMATELY 6 WEEKS
     Route: 065
     Dates: start: 20190218, end: 201904
  7. DEXA-GENTAMICIN [Suspect]
     Active Substance: DEXAMETHASONE\GENTAMICIN
     Indication: PRODUCT USED FOR UNKNOWN INDICATION
     Route: 065
     Dates: end: 201902
  8. TIMOPTIC [Suspect]
     Active Substance: TIMOLOL MALEATE
     Indication: POSTOPERATIVE CARE
     Dosage: 2X1 DROP DAILY DROP IN AFFECTED EYE
     Route: 065
     Dates: start: 20190129, end: 20190211
  9. OFLOXACIN-OPHTAL SINE 3 MG/ML AUGENTROPFEN [Suspect]
     Active Substance: OFLOXACIN
     Indication: PRODUCT USE IN UNAPPROVED INDICATION

REACTIONS (8)
  - Eye irritation [Recovered/Resolved]
  - Drug ineffective for unapproved indication [Unknown]
  - Chromaturia [Unknown]
  - Vision blurred [Unknown]
  - Cataract operation [Not Recovered/Not Resolved]
  - Conjunctivitis [Recovered/Resolved]
  - Product use in unapproved indication [Unknown]
  - Vitreous floaters [Recovered/Resolved]

NARRATIVE: CASE EVENT DATE: 2019
